FAERS Safety Report 7573932-3 (Version None)
Quarter: 2011Q2

REPORT INFORMATION
  Report Type: 
  Country: None (occurrence: None)
  Receive Date: 20110627
  Receipt Date: 20110615
  Transmission Date: 20111010
  Serious: Yes (Death, Other)
  Sender: FDA-Public Use
  Company Number: US-GENZYME-FABR-1001870

PATIENT

DRUGS (2)
  1. FABRAZYME [Suspect]
     Dosage: 70 MG, Q2W
     Route: 042
     Dates: start: 20040907
  2. FABRAZYME [Suspect]
     Indication: FABRY'S DISEASE
     Dosage: 70 MG, Q4W
     Route: 042

REACTIONS (3)
  - FABRY'S DISEASE [None]
  - ASTHENIA [None]
  - FAILURE TO THRIVE [None]
